FAERS Safety Report 4485467-5 (Version None)
Quarter: 2004Q4

REPORT INFORMATION
  Report Type: 
  Country: None (occurrence: None)
  Receive Date: 20041026
  Receipt Date: 20041019
  Transmission Date: 20050328
  Serious: Yes (Other)
  Sender: FDA-Public Use
  Company Number: 200418039US

PATIENT
  Age: 73 Year
  Sex: Female

DRUGS (1)
  1. CARAC [Suspect]
     Indication: SQUAMOUS CELL CARCINOMA
     Dosage: DOSE: UNK
     Route: 061
     Dates: start: 20040701, end: 20040701

REACTIONS (4)
  - ANAEMIA [None]
  - ANOREXIA [None]
  - BRONCHITIS [None]
  - WEIGHT DECREASED [None]
